FAERS Safety Report 14147519 (Version 1)
Quarter: 2017Q4

REPORT INFORMATION
  Report Type: Spontaneous
  Country: US (occurrence: US)
  Receive Date: 20171031
  Receipt Date: 20171031
  Transmission Date: 20180321
  Serious: No
  Sender: FDA-Public Use
  Company Number: US-MYLANLABS-2017M1069102

PATIENT
  Sex: Female
  Weight: 73 kg

DRUGS (2)
  1. SOMA [Suspect]
     Active Substance: CARISOPRODOL
     Indication: FIBROMYALGIA
     Dosage: 350 MG 1 TABELT, BID
  2. SOMA [Suspect]
     Active Substance: CARISOPRODOL
     Indication: INTERVERTEBRAL DISC DEGENERATION

REACTIONS (1)
  - Somnolence [Unknown]
